FAERS Safety Report 6044213-4 (Version None)
Quarter: 2009Q1

REPORT INFORMATION
  Report Type: 
  Country: None (occurrence: None)
  Receive Date: 20090120
  Receipt Date: 20080828
  Transmission Date: 20090719
  Serious: No
  Sender: FDA-Public Use
  Company Number: US-BAYER-200813602BCC

PATIENT
  Age: 53 Year
  Sex: Male
  Weight: 83 kg

DRUGS (11)
  1. ALEVE (CAPLET) [Suspect]
     Indication: HEADACHE
     Dosage: TOTAL DAILY DOSE: 440 MG  UNIT DOSE: 220 MG
     Route: 048
     Dates: start: 20080728
  2. PROTONIX [Concomitant]
  3. AMLODIPINE [Concomitant]
  4. LIPITOR [Concomitant]
  5. GLIPIZIDE [Concomitant]
  6. METOPROLOL TARTRATE [Concomitant]
  7. RENAGEL [Concomitant]
  8. ASPIRIN [Concomitant]
     Route: 048
  9. MULTI-VITAMIN [Concomitant]
  10. IRON [Concomitant]
  11. NITROGLYCERIN [Concomitant]

REACTIONS (1)
  - INSOMNIA [None]
